FAERS Safety Report 6189994-4 (Version None)
Quarter: 2009Q2

REPORT INFORMATION
  Report Type: 
  Country: None (occurrence: None)
  Receive Date: 20090514
  Receipt Date: 20090507
  Transmission Date: 20091009
  Serious: Yes (Hospitalization, Other)
  Sender: FDA-Public Use
  Company Number: PHEH2009US04501

PATIENT
  Sex: Female
  Weight: 112.93 kg

DRUGS (8)
  1. RECLAST [Suspect]
     Indication: OSTEOPOROSIS POSTMENOPAUSAL
     Dosage: 5 MG, ANNUALLY
     Route: 042
     Dates: start: 20090424
  2. PRILOSEC [Concomitant]
  3. DOLOBID [Concomitant]
  4. DIFLUNISAL [Concomitant]
  5. ENABLEX [Concomitant]
  6. LISINOPRIL [Concomitant]
  7. LYRICA [Concomitant]
  8. PREDNISONE [Concomitant]

REACTIONS (3)
  - FALL [None]
  - RENAL FAILURE ACUTE [None]
  - TIBIA FRACTURE [None]
